FAERS Safety Report 9214757 (Version 2)
Quarter: 2014Q1

REPORT INFORMATION
  Report Type: Spontaneous
  Country: US (occurrence: US)
  Receive Date: 20130405
  Receipt Date: 20140203
  Transmission Date: 20141002
  Serious: Yes (Other)
  Sender: FDA-Public Use
  Company Number: US-BAYER-2013-041101

PATIENT
  Sex: Female

DRUGS (5)
  1. YAZ [Suspect]
  2. NAPROXEN [Concomitant]
     Dosage: 550 MG, UNK
     Dates: start: 20100911
  3. XIFAXAN [Concomitant]
     Dosage: 200 MG, UNK
     Dates: start: 20100814
  4. LEVOTHYROXINE [Concomitant]
     Dosage: 112 MCG
     Dates: start: 20100701, end: 20100907
  5. ACETAMINOPHEN [Concomitant]

REACTIONS (4)
  - Cholecystitis [None]
  - Pain [None]
  - Injury [None]
  - Pain [None]
